FAERS Safety Report 5866257-5 (Version None)
Quarter: 2008Q3

REPORT INFORMATION
  Report Type: 
  Country: None (occurrence: None)
  Receive Date: 20080829
  Receipt Date: 20080822
  Transmission Date: 20090109
  Serious: Yes (Other)
  Sender: FDA-Public Use
  Company Number: US-PFIZER INC-2008070804

PATIENT
  Sex: Female
  Weight: 90 kg

DRUGS (3)
  1. CELEBREX [Suspect]
     Indication: OSTEOARTHRITIS
     Dosage: TEXT:200 MG DAILY EVERY DAY TDD:200 MG
  2. LISINOPRIL [Suspect]
     Indication: BLOOD PRESSURE INCREASED
     Dosage: TEXT:10MG DAILY EVERY DAY TDD:10MG
  3. LEXAPRO [Concomitant]

REACTIONS (4)
  - BLOOD PRESSURE INCREASED [None]
  - COLONOSCOPY [None]
  - DIARRHOEA [None]
  - WEIGHT DECREASED [None]
